FAERS Safety Report 14582671 (Version 2)
Quarter: 2018Q1

REPORT INFORMATION
  Report Type: Spontaneous
  Country: RU (occurrence: RU)
  Receive Date: 20180228
  Receipt Date: 20180316
  Transmission Date: 20180509
  Serious: Yes (Other)
  Sender: FDA-Public Use
  Company Number: RU-SA-2018SA046769

PATIENT
  Age: 65 Year
  Sex: Female

DRUGS (4)
  1. PLAVIX [Suspect]
     Active Substance: CLOPIDOGREL BISULFATE
     Route: 048
  2. CONCOR [Concomitant]
     Active Substance: BISOPROLOL FUMARATE
  3. PRESTARIUM [Concomitant]
     Active Substance: PERINDOPRIL
  4. AMLODIPIN [Concomitant]
     Active Substance: AMLODIPINE BESYLATE

REACTIONS (4)
  - Vomiting [Unknown]
  - Hypoaesthesia [Unknown]
  - Chest pain [Unknown]
  - Product counterfeit [Unknown]
